FAERS Safety Report 14158639 (Version 1)
Quarter: 2017Q4

REPORT INFORMATION
  Report Type: Spontaneous
  Country: CH (occurrence: CH)
  Receive Date: 20171103
  Receipt Date: 20171103
  Transmission Date: 20180321
  Serious: Yes (Other)
  Sender: FDA-Public Use
  Company Number: CH-SA-2017SA207749

PATIENT
  Age: 0 Day
  Sex: Male
  Weight: 3.35 kg

DRUGS (3)
  1. TEMESTA (LORAZEPAM) [Suspect]
     Active Substance: LORAZEPAM
     Route: 064
     Dates: start: 2016, end: 201606
  2. STILNOX [Suspect]
     Active Substance: ZOLPIDEM TARTRATE
     Route: 064
  3. SANALEPSI N [Suspect]
     Active Substance: DOXYLAMINE SUCCINATE
     Route: 064
     Dates: start: 201606, end: 201611

REACTIONS (2)
  - Head deformity [Unknown]
  - Foetal exposure during pregnancy [Unknown]

NARRATIVE: CASE EVENT DATE: 20161101
